FAERS Safety Report 9415280 (Version 1)
Quarter: 2013Q3

REPORT INFORMATION
  Report Type: Report from Study
  Country: US (occurrence: US)
  Receive Date: 20130723
  Receipt Date: 20130723
  Transmission Date: 20140515
  Serious: Yes (Other)
  Sender: FDA-Public Use
  Company Number: US-PFIZER INC-2013213685

PATIENT
  Age: 44 Year
  Sex: Female

DRUGS (13)
  1. ENBREL [Suspect]
     Indication: RHEUMATOID ARTHRITIS
     Dosage: 50 MG, QWK
     Route: 058
  2. LYRICA [Suspect]
     Dosage: UNK
  3. LASIX [Concomitant]
     Dosage: 20 MG, UNK
  4. POTASSIUM [Concomitant]
     Dosage: 75 MG, UNK
  5. FENTANYL [Concomitant]
     Dosage: 12 MUG, QH
  6. OXYCODONE [Concomitant]
     Dosage: 10 MG, UNK
  7. DETROL [Concomitant]
     Dosage: 1 MG, UNK
  8. XANAX [Concomitant]
     Dosage: 0.25 MG, UNK
  9. CELEXA [Concomitant]
     Dosage: 10 MG, UNK
  10. METHOTREXATE [Concomitant]
     Dosage: 2.5 MG, UNK
  11. FOLIC ACID [Concomitant]
     Dosage: UNK
  12. AMBIEN [Concomitant]
     Dosage: 5 MG, UNK
  13. MULTIVITAMINS, PLAIN [Concomitant]
     Dosage: UNK

REACTIONS (6)
  - Obesity [Unknown]
  - Arthropathy [Unknown]
  - Hernia [Unknown]
  - Convulsion [Recovered/Resolved]
  - Local swelling [Unknown]
  - Skin disorder [Unknown]
